FAERS Safety Report 6112501-9 (Version None)
Quarter: 2009Q1

REPORT INFORMATION
  Report Type: 
  Country: None (occurrence: None)
  Receive Date: 20090312
  Receipt Date: 20090302
  Transmission Date: 20090719
  Serious: Yes (Hospitalization)
  Sender: FDA-Public Use
  Company Number: PHBS2009US01009

PATIENT
  Age: 55 Year
  Sex: Male

DRUGS (5)
  1. LAMISIL [Suspect]
  2. ALLOPURINOL [Suspect]
     Indication: GOUT
     Dosage: 100 MG/DAY
  3. ALLOPURINOL [Suspect]
     Dosage: 300 MG/DAY
  4. CIPROFLOXACIN [Concomitant]
  5. LISINOPRIL [Concomitant]

REACTIONS (21)
  - ALANINE AMINOTRANSFERASE INCREASED [None]
  - ASPARTATE AMINOTRANSFERASE INCREASED [None]
  - BLOOD ALKALINE PHOSPHATASE INCREASED [None]
  - BLOOD CREATININE INCREASED [None]
  - BLOOD SODIUM DECREASED [None]
  - DERMATITIS EXFOLIATIVE [None]
  - DRUG RASH WITH EOSINOPHILIA AND SYSTEMIC SYMPTOMS [None]
  - EOSINOPHILIA [None]
  - FATIGUE [None]
  - HAEMODIALYSIS [None]
  - LIP SWELLING [None]
  - MARROW HYPERPLASIA [None]
  - OROPHARYNGEAL PAIN [None]
  - PAIN IN EXTREMITY [None]
  - PHOTOSENSITIVITY REACTION [None]
  - PRURITUS [None]
  - PSEUDOLYMPHOMA [None]
  - PYREXIA [None]
  - RASH [None]
  - RENAL IMPAIRMENT [None]
  - WHITE BLOOD CELL COUNT INCREASED [None]
